FAERS Safety Report 7890040-2 (Version None)
Quarter: 2011Q4

REPORT INFORMATION
  Report Type: 
  Country: None (occurrence: None)
  Receive Date: 20111103
  Receipt Date: 20111027
  Transmission Date: 20120403
  Serious: Yes (Hospitalization, Other)
  Sender: FDA-Public Use
  Company Number: PHHY2011US01785

PATIENT
  Sex: Female
  Weight: 98.413 kg

DRUGS (9)
  1. AMITRIPTYLINE HCL [Concomitant]
     Dosage: 25 MG, A DAY
  2. NORCO [Concomitant]
     Dosage: UNK UKN, PRN
  3. PHENOBARBITAL TAB [Concomitant]
     Dosage: 129 MG, AT BED TIME
  4. EXJADE [Suspect]
     Indication: LYMPHOPROLIFERATIVE DISORDER
     Dosage: 2000 MG, QD
     Route: 048
     Dates: start: 20100517
  5. RELAFEN [Concomitant]
     Dosage: 75 MG, BID
  6. MOMETASONE FUROATE [Concomitant]
  7. COLESTIPOL HYDROCHLORIDE [Concomitant]
     Dosage: 1 G, BID
  8. PSYLLIUM [Concomitant]
     Dosage: UNK UKN, PRN
  9. TOPAMAX [Concomitant]
     Dosage: 100 MG, BID

REACTIONS (8)
  - IRON OVERLOAD [None]
  - SINUSITIS [None]
  - ASTHENIA [None]
  - ALTERED STATE OF CONSCIOUSNESS [None]
  - CONVULSION [None]
  - DYSARTHRIA [None]
  - FATIGUE [None]
  - INFLUENZA LIKE ILLNESS [None]
